FAERS Safety Report 16145880 (Version 1)
Quarter: 2019Q2

REPORT INFORMATION
  Report Type: Spontaneous
  Country: US (occurrence: US)
  Receive Date: 20190227
  Receipt Date: 20190227
  Transmission Date: 20190711
  Serious: No
  Sender: FDA-Public Use
  Company Number: None

PATIENT
  Age: 53 Year
  Sex: Male
  Weight: 84.82 kg

DRUGS (1)
  1. SIMPONI ARIA [Suspect]
     Active Substance: GOLIMUMAB
     Indication: RHEUMATOID ARTHRITIS
     Dosage: INJECT 173MG  SUBCUTANEOUSLY  OVER 30 MINUTES AT WEEKS 0 AND 4  AS DIRECTED
     Route: 042
     Dates: start: 201811

REACTIONS (2)
  - Rash [None]
  - Dysuria [None]
